FAERS Safety Report 7467224-0 (Version None)
Quarter: 2011Q2

REPORT INFORMATION
  Report Type: 
  Country: None (occurrence: None)
  Receive Date: 20110509
  Receipt Date: 20101117
  Transmission Date: 20111010
  Serious: No
  Sender: FDA-Public Use
  Company Number: US-ALEXION-A201001481

PATIENT
  Sex: Female

DRUGS (3)
  1. SOLIRIS [Suspect]
     Indication: PAROXYSMAL NOCTURNAL HAEMOGLOBINURIA
     Dosage: UNK
  2. COUMADIN [Suspect]
     Dosage: 52.5 MG, QW
     Dates: start: 20101119
  3. COUMADIN [Suspect]
     Indication: ANTICOAGULANT THERAPY
     Dosage: 56.25 MG, QW
     Dates: end: 20101115

REACTIONS (1)
  - INTERNATIONAL NORMALISED RATIO ABNORMAL [None]
